FAERS Safety Report 8444546-8 (Version None)
Quarter: 2012Q2

REPORT INFORMATION
  Report Type: 
  Country: None (occurrence: None)
  Receive Date: 20120618
  Receipt Date: 20120608
  Transmission Date: 20120825
  Serious: Yes (Other)
  Sender: FDA-Public Use
  Company Number: IE-ASTRAZENECA-2012SE39558

PATIENT
  Age: 15 Year
  Sex: Male

DRUGS (2)
  1. MEROPENEM [Suspect]
     Route: 042
  2. ANTIBIOTICS [Concomitant]
     Dates: start: 20120518

REACTIONS (3)
  - PERIPHERAL COLDNESS [None]
  - CYANOSIS [None]
  - ARTERIAL THROMBOSIS LIMB [None]
